FAERS Safety Report 7350498-4 (Version None)
Quarter: 2011Q1

REPORT INFORMATION
  Report Type: 
  Country: None (occurrence: None)
  Receive Date: 20110314
  Receipt Date: 20110304
  Transmission Date: 20110831
  Serious: Yes (Life-Threatening, Hospitalization, Other)
  Sender: FDA-Public Use
  Company Number: DE-ABBOTT-10P-062-0692315-00

PATIENT
  Age: 56 Year
  Sex: Female
  Weight: 71 kg

DRUGS (7)
  1. TAVOR [Suspect]
     Route: 042
     Dates: start: 20101007, end: 20101007
  2. ALLOPURINOL [Suspect]
     Indication: PRODUCT USED FOR UNKNOWN INDICATION
     Dosage: OPD
     Dates: start: 20101007, end: 20101011
  3. KLACID I.V. [Suspect]
     Indication: PNEUMONIA
     Route: 042
     Dates: start: 20101007, end: 20101007
  4. TAVOR [Suspect]
     Indication: PRODUCT USED FOR UNKNOWN INDICATION
     Dosage: DAILY DOSE: 1-2MG, 1/2MG SINGLE DOSE TAB
     Route: 048
     Dates: start: 20101008, end: 20101010
  5. TAVOR [Suspect]
     Dosage: DAILY DOSE: 1-2MG, 1/2MG SINGLE DOSE TAB
     Route: 048
     Dates: start: 20101014, end: 20101014
  6. TAVOR [Suspect]
     Dosage: DAILY DOSE: 1-2MG, 1/2MG SINGLE DOSE TAB
     Route: 048
     Dates: start: 20101021, end: 20101107
  7. ROCEPHIN [Suspect]
     Indication: PNEUMONIA
     Dosage: PAUSED 13 OCT 2010
     Route: 042
     Dates: start: 20101007, end: 20101014

REACTIONS (2)
  - HEPATITIS ACUTE [None]
  - RENAL FAILURE ACUTE [None]
